FAERS Safety Report 16391857 (Version 3)
Quarter: 2019Q3

REPORT INFORMATION
  Report Type: Spontaneous
  Country: PT (occurrence: PT)
  Receive Date: 20190605
  Receipt Date: 20190723
  Transmission Date: 20191004
  Serious: Yes (Hospitalization, Other)
  Sender: FDA-Public Use
  Company Number: PT-GILEAD-2019-0411578

PATIENT
  Age: 49 Year
  Sex: Male

DRUGS (2)
  1. DACLATASVIR. [Suspect]
     Active Substance: DACLATASVIR
     Indication: CHRONIC HEPATITIS C
     Dosage: 60 MG
     Route: 048
     Dates: start: 20180313
  2. SOVALDI [Suspect]
     Active Substance: SOFOSBUVIR
     Indication: CHRONIC HEPATITIS C
     Dosage: 400 MG
     Route: 048
     Dates: start: 20180313

REACTIONS (7)
  - Pulmonary tuberculosis [Recovered/Resolved]
  - Decreased appetite [Unknown]
  - Purulent discharge [Unknown]
  - Mucosal inflammation [Unknown]
  - Rales [Unknown]
  - Weight decreased [Unknown]
  - Lung abscess [Unknown]

NARRATIVE: CASE EVENT DATE: 201803
